FAERS Safety Report 8184955-8 (Version None)
Quarter: 2012Q1

REPORT INFORMATION
  Report Type: 
  Country: None (occurrence: None)
  Receive Date: 20120305
  Receipt Date: 20120221
  Transmission Date: 20120608
  Serious: Yes (Hospitalization)
  Sender: FDA-Public Use
  Company Number: FR-GLAXOSMITHKLINE-B0782920A

PATIENT
  Sex: Male

DRUGS (15)
  1. IMMUNE GLOBULIN INTRAVENOUS (HUMAN) [Suspect]
     Indication: IMMUNODEFICIENCY
     Route: 042
     Dates: end: 20111228
  2. PREDNISONE TAB [Concomitant]
     Dosage: 30MG PER DAY
     Route: 065
     Dates: end: 20120105
  3. CALCIUM CARBONATE [Concomitant]
     Dosage: 500MG THREE TIMES PER DAY
     Route: 065
     Dates: end: 20120105
  4. FOLIC ACID [Concomitant]
     Dosage: 5MG TWICE PER DAY
     Route: 065
     Dates: end: 20120105
  5. FLUTICASONE PROPIONATE/SALMETEROL [Suspect]
     Indication: ASTHMA
     Dosage: 1000MCG TWICE PER DAY
     Route: 055
     Dates: end: 20120105
  6. THEOPHYLLINE [Suspect]
     Indication: ASTHMA
     Dosage: 400MG TWICE PER DAY
     Route: 048
     Dates: end: 20120105
  7. ATROVENT [Suspect]
     Indication: ASTHMA
     Dosage: 1PUFF TWICE PER DAY
     Route: 055
     Dates: end: 20120105
  8. XANAX [Concomitant]
     Dosage: .25MG PER DAY
     Route: 065
     Dates: end: 20120105
  9. LANSOPRAZOLE [Concomitant]
     Dosage: 30MG PER DAY
     Route: 065
     Dates: end: 20120105
  10. KALEORID LP [Concomitant]
     Dosage: 1000MG THREE TIMES PER DAY
     Route: 065
     Dates: end: 20120105
  11. DESLORATADINE [Concomitant]
     Dosage: 1UNIT PER DAY
     Route: 065
     Dates: end: 20120105
  12. BRICANYL [Concomitant]
     Dosage: 1UNIT THREE TIMES PER DAY
     Route: 065
     Dates: end: 20120105
  13. TRANDOLAPRIL [Suspect]
     Dosage: 2MG PER DAY
     Route: 048
     Dates: end: 20120105
  14. MIRTAZAPINE [Concomitant]
     Dosage: 15MG PER DAY
     Route: 065
     Dates: end: 20120105
  15. GAVISCON [Concomitant]
     Dosage: 1UNIT THREE TIMES PER DAY
     Route: 065
     Dates: end: 20120105

REACTIONS (24)
  - LIVEDO RETICULARIS [None]
  - DISORIENTATION [None]
  - BRADYPNOEA [None]
  - TACHYPNOEA [None]
  - POLYURIA [None]
  - DEHYDRATION [None]
  - METABOLIC ACIDOSIS [None]
  - VOMITING [None]
  - CONVULSION [None]
  - DIARRHOEA [None]
  - USE OF ACCESSORY RESPIRATORY MUSCLES [None]
  - ASTHENIA [None]
  - HYPOVOLAEMIA [None]
  - HYPOTENSION [None]
  - STREPTOCOCCAL SEPSIS [None]
  - DISTURBANCE IN ATTENTION [None]
  - TACHYARRHYTHMIA [None]
  - CONFUSIONAL STATE [None]
  - RENAL FAILURE [None]
  - DECREASED APPETITE [None]
  - PULMONARY FUNCTION TEST DECREASED [None]
  - AORTIC THROMBOSIS [None]
  - EXTREMITY NECROSIS [None]
  - GENERAL PHYSICAL HEALTH DETERIORATION [None]
